FAERS Safety Report 11674009 (Version 2)
Quarter: 2016Q1

REPORT INFORMATION
  Report Type: Spontaneous
  Country: US (occurrence: US)
  Receive Date: 20151028
  Receipt Date: 20160204
  Transmission Date: 20160525
  Serious: Yes (Other)
  Sender: FDA-Public Use
  Company Number: US-THROMBOGENICS NV-SPO-2015-2045

PATIENT
  Age: 62 Year
  Sex: Male

DRUGS (2)
  1. JETREA [Suspect]
     Active Substance: OCRIPLASMIN
     Indication: MACULAR HOLE
  2. JETREA [Suspect]
     Active Substance: OCRIPLASMIN
     Indication: VITREOUS ADHESIONS
     Dosage: 0.125 MG, ONE TIME DOSE
     Route: 031
     Dates: start: 20130603, end: 20130603

REACTIONS (6)
  - Photopsia [Unknown]
  - Chromatopsia [Recovering/Resolving]
  - Metamorphopsia [Recovering/Resolving]
  - Retinal deposits [Unknown]
  - Visual impairment [Recovering/Resolving]
  - Macular detachment [Recovered/Resolved]

NARRATIVE: CASE EVENT DATE: 20130604
